FAERS Safety Report 6991830-0 (Version None)
Quarter: 2010Q3

REPORT INFORMATION
  Report Type: 
  Country: None (occurrence: None)
  Receive Date: 20100916
  Receipt Date: 20100916
  Transmission Date: 20110219
  Serious: Yes (Death)
  Sender: FDA-Public Use
  Company Number: None

PATIENT
  Age: 57 Year
  Sex: Male

DRUGS (8)
  1. ABILIFY [Suspect]
  2. WELLBUTRIN [Suspect]
  3. LAMICTAL [Suspect]
  4. INDOCIN [Concomitant]
  5. VERAPAMIL [Concomitant]
  6. LIPITOR [Concomitant]
  7. NIASPAN [Concomitant]
  8. AMBIEN [Concomitant]

REACTIONS (4)
  - COMPLETED SUICIDE [None]
  - GUN SHOT WOUND [None]
  - MOVEMENT DISORDER [None]
  - THERAPEUTIC RESPONSE DECREASED [None]
